FAERS Safety Report 18939785 (Version 4)
Quarter: 2024Q3

REPORT INFORMATION
  Report Type: Spontaneous
  Country: US (occurrence: US)
  Receive Date: 20210224
  Receipt Date: 20240712
  Transmission Date: 20241016
  Serious: Yes (Other)
  Sender: AMGEN
  Company Number: US-HORIZON THERAPEUTICS-HZN-2021-000553

PATIENT
  Age: 5 Year
  Sex: Male
  Weight: 20 kg

DRUGS (13)
  1. PROCYSBI [Suspect]
     Active Substance: CYSTEAMINE BITARTRATE
     Indication: Cystinosis
     Dosage: 3 DOSAGE FORM, BID (75MG CAPSULES)
     Route: 065
     Dates: start: 20180712, end: 20201117
  2. PROCYSBI [Suspect]
     Active Substance: CYSTEAMINE BITARTRATE
     Dosage: 525 MILLIGRAM, BID
     Route: 065
     Dates: start: 20201117, end: 20210219
  3. SYNTHROID [Concomitant]
     Active Substance: LEVOTHYROXINE SODIUM
     Indication: Cystinosis
     Dosage: 2.5MCG
     Route: 065
     Dates: start: 2019
  4. SYNTHROID [Concomitant]
     Active Substance: LEVOTHYROXINE SODIUM
     Dosage: 25 MICROGRAM, QD
     Route: 065
     Dates: start: 20200730
  5. FAMOTIDINE [Concomitant]
     Active Substance: FAMOTIDINE
     Indication: Cystinosis
     Dosage: UNK,8 MG/ML (1.5 ML DAILY)
     Route: 048
     Dates: start: 201808
  6. FAMOTIDINE [Concomitant]
     Active Substance: FAMOTIDINE
     Dosage: UNK, 8 MG/ML (1.5 ML DAILY)
     Route: 048
     Dates: start: 20200921
  7. CYSTO RENEW [Concomitant]
     Indication: Cystinosis
     Dosage: UNK
     Route: 065
  8. KCL [Concomitant]
     Active Substance: POTASSIUM CHLORIDE
     Indication: Hypokalaemia
     Dosage: 20 MILLIEQUIVALENT, QD
     Route: 065
  9. LEVOCARNITINE [Concomitant]
     Active Substance: LEVOCARNITINE
     Indication: Product used for unknown indication
     Dosage: 100 MILLIGRAM, BID (100 MG/ML)
     Route: 048
     Dates: start: 20200820
  10. LOPERAMIDE [Concomitant]
     Active Substance: LOPERAMIDE
     Indication: Diarrhoea
     Dosage: 1 MILLIGRAM, BID (1 MG/5 ML)
     Route: 065
     Dates: start: 20180817
  11. K PHOS NEUTRAL [Concomitant]
     Active Substance: POTASSIUM PHOSPHATE, MONOBASIC\SODIUM PHOSPHATE, DIBASIC, ANHYDROUS\SODIUM PHOSPHATE, MONOBASIC, MON
     Indication: Product used for unknown indication
     Dosage: 280 MG-160 MG-250 MG, 1 PACKET, QD
     Route: 048
     Dates: start: 20200707
  12. ONDANSETRON [Concomitant]
     Active Substance: ONDANSETRON
     Indication: Product used for unknown indication
     Dosage: 4 MG/5 ML, Q6H
     Route: 048
     Dates: start: 20200930
  13. CHOLECALCIFEROL [Concomitant]
     Active Substance: CHOLECALCIFEROL
     Indication: Product used for unknown indication
     Dosage: 25 MICROGRAM, QD
     Route: 048
     Dates: start: 20200707, end: 202011

REACTIONS (1)
  - Fibrosing colonopathy [Recovering/Resolving]

NARRATIVE: CASE EVENT DATE: 20200601
